FAERS Safety Report 6417285-2 (Version None)
Quarter: 2009Q4

REPORT INFORMATION
  Report Type: 
  Country: None (occurrence: None)
  Receive Date: 20091028
  Receipt Date: 20091015
  Transmission Date: 20100525
  Serious: Yes (Hospitalization, Other)
  Sender: FDA-Public Use
  Company Number: PHEH2009US10842

PATIENT
  Sex: Male
  Weight: 60.317 kg

DRUGS (11)
  1. EXJADE [Suspect]
     Indication: MYELODYSPLASTIC SYNDROME
     Dosage: 1125 MG, DAILY
     Route: 048
     Dates: start: 20090821, end: 20090911
  2. EXJADE [Suspect]
     Indication: IRON OVERLOAD
     Dosage: UNK, UNK
     Dates: start: 20090929
  3. MULTI-VITAMINS [Concomitant]
  4. LISINOPRIL [Concomitant]
     Dosage: 20 MG, QD
     Route: 048
  5. CALCIUM [Concomitant]
  6. FORTEO [Concomitant]
  7. TYLENOL [Concomitant]
  8. FUROSEMIDE [Concomitant]
     Dosage: 40 MG, QD
     Route: 048
  9. ZANTAC [Concomitant]
     Dosage: 150 MG, BID
     Route: 048
  10. HYDROCODONE [Concomitant]
     Dosage: 5 MG 4 TO 6 HRS AS NEEDED
     Route: 048
  11. RANITIDINE [Concomitant]

REACTIONS (5)
  - CARDIAC FAILURE CONGESTIVE [None]
  - HYPERBILIRUBINAEMIA [None]
  - INFLUENZA [None]
  - LIVER FUNCTION TEST ABNORMAL [None]
  - NAUSEA [None]
